FAERS Safety Report 7553521-7 (Version None)
Quarter: 2011Q2

REPORT INFORMATION
  Report Type: 
  Country: None (occurrence: None)
  Receive Date: 20110617
  Receipt Date: 20110602
  Transmission Date: 20111010
  Serious: Yes (Other)
  Sender: FDA-Public Use
  Company Number: US-BAYER-2011-007005

PATIENT
  Sex: Female
  Weight: 66 kg

DRUGS (7)
  1. CIPROFLOXACIN [Concomitant]
     Dosage: 750 MG, UNK
     Route: 048
     Dates: start: 20070628, end: 20070701
  2. YASMIN [Suspect]
     Indication: ACNE
     Dosage: UNK
     Dates: start: 20030901, end: 20031101
  3. YASMIN [Suspect]
     Dosage: UNK
     Dates: start: 20050201, end: 20051001
  4. YASMIN [Suspect]
     Dosage: UNK
     Dates: start: 20060801, end: 20071201
  5. OMEPRAZOLE [Concomitant]
     Indication: GASTROOESOPHAGEAL REFLUX DISEASE
     Dosage: 20 MG, UNK
     Route: 048
     Dates: start: 20070522, end: 20070601
  6. MEPROZINE [Concomitant]
     Indication: PAIN
     Dosage: 50 MG, UNK
     Route: 048
     Dates: start: 20070628, end: 20070701
  7. LEXAPRO [Concomitant]
     Indication: DEPRESSION
     Dosage: UNK
     Route: 048
     Dates: start: 20041201

REACTIONS (4)
  - AFFECT LABILITY [None]
  - MENTAL DISORDER [None]
  - PAIN [None]
  - CHOLECYSTITIS CHRONIC [None]
